FAERS Safety Report 23389326 (Version 1)
Quarter: 2024Q1

REPORT INFORMATION
  Report Type: Spontaneous
  Country: CH (occurrence: CH)
  Receive Date: 20240110
  Receipt Date: 20240110
  Transmission Date: 20240410
  Serious: Yes (Hospitalization, Other)
  Sender: FDA-Public Use
  Company Number: None

PATIENT
  Age: 77 Year
  Sex: Male
  Weight: 88.0 kg

DRUGS (11)
  1. ABECMA [Suspect]
     Active Substance: IDECABTAGENE VICLEUCEL
     Indication: Plasma cell myeloma
     Route: 042
     Dates: start: 20231107, end: 20231107
  2. CYCLOPHOSPHAMIDE [Suspect]
     Active Substance: CYCLOPHOSPHAMIDE
     Indication: Lymphodepletion
     Dosage: 300 MG/M2  D-5 TO D-3
     Dates: start: 20231102
  3. FLUDARABINE [Suspect]
     Active Substance: FLUDARABINE PHOSPHATE
     Indication: Lymphodepletion
     Dosage: FLUDARABINE 30 MG/M2 D-5 TO D-3,
     Dates: start: 20231102
  4. CALCIUM D3 MEPHA [Concomitant]
     Indication: Product used for unknown indication
     Dosage: CALCIUM D3 MEPHA BRAUSETABL 1200 MG/800 E?0-1-0-0
     Route: 048
  5. VALTREX [Concomitant]
     Active Substance: VALACYCLOVIR HYDROCHLORIDE
     Indication: Product used for unknown indication
     Dosage: ALLE 12H 1 TABL?VALTREX (VALACICLOVIR) FILMTABL 500 MG
     Route: 048
  6. XARELTO [Concomitant]
     Active Substance: RIVAROXABAN
     Indication: Product used for unknown indication
     Dosage: 1-0-0-0?XARELTO (RIVAROXABAN) 20 MG FILMTABL
     Route: 048
  7. ALLOPURINOL [Concomitant]
     Active Substance: ALLOPURINOL
     Indication: Product used for unknown indication
     Dosage: 1-0-0-0?ALLOPURINOL MEPHA TABL 300 MG
     Route: 048
     Dates: end: 20231107
  8. AMIODARONE HYDROCHLORIDE [Concomitant]
     Active Substance: AMIODARONE HYDROCHLORIDE
     Indication: Product used for unknown indication
     Dosage: 1-0-0-0?AMIODARONE ZENTIVA TABL 200 MG
     Route: 048
  9. BACTRIM [Concomitant]
     Active Substance: SULFAMETHOXAZOLE\TRIMETHOPRIM
     Indication: Product used for unknown indication
     Dosage: MO+MI+FR 1 TABL??BACTRIM FORTE TABL 800/160 MG (COTRIMOXAZOL)
     Route: 048
  10. METOPROLOL SUCCINATE [Concomitant]
     Active Substance: METOPROLOL SUCCINATE
     Indication: Product used for unknown indication
     Dosage: 0-0-1-0
     Route: 048
  11. LAXIPEG [Concomitant]
     Indication: Product used for unknown indication
     Dosage: B. BEDARF MAX. 2 BEUTEL/24H -} 1 BEUTEL 7.11.2023
     Route: 048

REACTIONS (7)
  - Immune effector cell-associated neurotoxicity syndrome [Recovered/Resolved]
  - Cytopenia [Recovered/Resolved]
  - Cytokine release syndrome [Recovered/Resolved]
  - Haemophagocytic lymphohistiocytosis [Unknown]
  - Candida infection [Unknown]
  - Refeeding syndrome [Unknown]
  - Electrolyte imbalance [Unknown]

NARRATIVE: CASE EVENT DATE: 20231107
